FAERS Safety Report 19038676 (Version 2)
Quarter: 2021Q3

REPORT INFORMATION
  Report Type: Spontaneous
  Country: US (occurrence: US)
  Receive Date: 20210322
  Receipt Date: 20210712
  Transmission Date: 20211014
  Serious: Yes (Hospitalization)
  Sender: FDA-Public Use
  Company Number: US-TEVA-2021-US-1893720

PATIENT
  Age: 25 Year
  Sex: Female

DRUGS (1)
  1. DROSPIRENONE/ETHINYL ESTRADIOL [Suspect]
     Active Substance: DROSPIRENONE\ETHINYL ESTRADIOL
     Indication: ORAL CONTRACEPTION
     Dosage: DROSPIRENONE/ETHINYLESTRADIOL 3MG/0.03MG
     Route: 048

REACTIONS (2)
  - Arterial thrombosis [Unknown]
  - Renal infarct [Unknown]
